FAERS Safety Report 12404787 (Version 2)
Quarter: 2016Q2

REPORT INFORMATION
  Report Type: Spontaneous
  Country: FR (occurrence: FR)
  Receive Date: 20160525
  Receipt Date: 20160530
  Transmission Date: 20160815
  Serious: Yes (Disabling)
  Sender: FDA-Public Use
  Company Number: FR-ABBVIE-16P-056-1575965-00

PATIENT
  Age: 86 Year
  Sex: Female
  Weight: 79 kg

DRUGS (1)
  1. FENOFIBRATE BIOGARAN 300 GELULE [Suspect]
     Active Substance: FENOFIBRATE
     Indication: BLOOD CHOLESTEROL ABNORMAL
     Route: 048
     Dates: start: 1994, end: 201512

REACTIONS (8)
  - Drug ineffective [None]
  - Muscular weakness [Not Recovered/Not Resolved]
  - Joint ankylosis [None]
  - Arthralgia [Unknown]
  - Osteoarthritis [None]
  - Pain [Not Recovered/Not Resolved]
  - Abasia [None]
  - Somnolence [None]

NARRATIVE: CASE EVENT DATE: 2014
